FAERS Safety Report 21786638 (Version 2)
Quarter: 2023Q1

REPORT INFORMATION
  Report Type: Report from Study
  Country: US (occurrence: US)
  Receive Date: 20221228
  Receipt Date: 20230308
  Transmission Date: 20230417
  Serious: Yes (Other)
  Sender: FDA-Public Use
  Company Number: US-ABBVIE-4214253

PATIENT
  Age: 31 Year
  Sex: Male
  Weight: 83 kg

DRUGS (5)
  1. HUMIRA [Suspect]
     Active Substance: ADALIMUMAB
     Indication: Crohn^s disease
     Dosage: CITRATE FREE FORM STRENGTH - 40 MG
     Route: 058
     Dates: start: 20220422
  2. METOPROLOL [Concomitant]
     Active Substance: METOPROLOL
     Indication: Product used for unknown indication
     Dates: start: 20230103
  3. LISINOPRIL [Concomitant]
     Active Substance: LISINOPRIL
     Indication: Product used for unknown indication
     Dosage: FIRST ADMIN DATE-2018
     Dates: end: 20221125
  4. AMLODIPINE [Concomitant]
     Active Substance: AMLODIPINE BESYLATE
     Indication: Product used for unknown indication
     Dates: start: 20221128, end: 20230103
  5. MESALAMINE [Concomitant]
     Active Substance: MESALAMINE
     Indication: Product used for unknown indication
     Dosage: DELAYED RELEASE

REACTIONS (5)
  - Acute kidney injury [Unknown]
  - Influenza like illness [Recovered/Resolved]
  - Nasal congestion [Unknown]
  - Decreased appetite [Unknown]
  - Cough [Unknown]

NARRATIVE: CASE EVENT DATE: 20221123
